FAERS Safety Report 5089047-2 (Version None)
Quarter: 2006Q3

REPORT INFORMATION
  Report Type: 
  Country: None (occurrence: None)
  Receive Date: 20060825
  Receipt Date: 20060817
  Transmission Date: 20061208
  Serious: Yes (Other)
  Sender: FDA-Public Use
  Company Number: 2006UW16465

PATIENT
  Age: 29 Year
  Sex: Female

DRUGS (3)
  1. SEROQUEL [Suspect]
     Route: 048
     Dates: start: 20060701
  2. FOSAMAX [Concomitant]
  3. NASACORT AQ [Concomitant]
     Indication: MULTIPLE ALLERGIES

REACTIONS (2)
  - CONVULSION [None]
  - ENCEPHALOPATHY [None]
